FAERS Safety Report 10571167 (Version 1)
Quarter: 2014Q4

REPORT INFORMATION
  Report Type: Spontaneous
  Country: US (occurrence: US)
  Receive Date: 20141107
  Receipt Date: 20141107
  Transmission Date: 20150529
  Serious: No
  Sender: FDA-Public Use
  Company Number: US-009507513-1410USA013079

PATIENT
  Sex: Male

DRUGS (3)
  1. PEGINTRON [Suspect]
     Active Substance: PEGINTERFERON ALFA-2B
     Indication: HEPATITIS C
     Dosage: UNK
     Dates: start: 20140915
  2. RIBAVIRIN (WARRICK) [Suspect]
     Active Substance: RIBAVIRIN
     Dosage: UNK
     Route: 048
  3. SOVALDI [Concomitant]
     Active Substance: SOFOSBUVIR
     Dosage: UNK

REACTIONS (4)
  - Incorrect dose administered [Unknown]
  - Product quality issue [Unknown]
  - Injection site erythema [Unknown]
  - Wrong technique in drug usage process [Unknown]
